FAERS Safety Report 8848330 (Version 2)
Quarter: 2012Q4

REPORT INFORMATION
  Report Type: 
  Country: US (occurrence: US)
  Receive Date: 20121019
  Receipt Date: 20121130
  Transmission Date: 20130627
  Serious: Yes (Other)
  Sender: FDA-Public Use
  Company Number: US-AMGEN-USASP2012065400

PATIENT
  Sex: Female
  Weight: 75.28 kg

DRUGS (2)
  1. PROLIA [Suspect]
     Indication: BONE LOSS
     Dosage: UNK UNK, q6mo
     Route: 058
     Dates: start: 20120403
  2. EXEMESTANE [Concomitant]
     Indication: BREAST CANCER

REACTIONS (2)
  - Gastric haemorrhage [Not Recovered/Not Resolved]
  - Haematemesis [Not Recovered/Not Resolved]
